FAERS Safety Report 7315906-3 (Version None)
Quarter: 2011Q1

REPORT INFORMATION
  Report Type: 
  Country: None (occurrence: None)
  Receive Date: 20110225
  Receipt Date: 20110216
  Transmission Date: 20110831
  Serious: Yes (Hospitalization)
  Sender: FDA-Public Use
  Company Number: US-JNJFOC-20110202415

PATIENT
  Sex: Male
  Weight: 31.9 kg

DRUGS (7)
  1. REMICADE [Suspect]
     Route: 042
  2. LORATADINE [Concomitant]
     Route: 048
  3. REMICADE [Suspect]
     Indication: INFLAMMATORY BOWEL DISEASE
     Route: 042
  4. PREVACID [Concomitant]
     Route: 048
  5. IRON SUPPLEMENT [Concomitant]
     Route: 048
  6. MULTI-VITAMINS [Concomitant]
  7. VITAMIN D [Concomitant]
     Route: 048

REACTIONS (1)
  - INTESTINAL OBSTRUCTION [None]
